FAERS Safety Report 9782627 (Version 6)
Quarter: 2014Q2

REPORT INFORMATION
  Report Type: Spontaneous
  Country: GB (occurrence: GB)
  Receive Date: 20131226
  Receipt Date: 20140516
  Transmission Date: 20141212
  Serious: Yes (Hospitalization)
  Sender: FDA-Public Use
  Company Number: PHFR2013GB004354

PATIENT
  Age: 29 Year
  Sex: Male

DRUGS (2)
  1. CLOZARIL [Suspect]
     Indication: SCHIZOPHRENIA
     Dosage: UNK
     Route: 048
     Dates: start: 20050110, end: 20131231
  2. CLOZARIL [Suspect]
     Dosage: UNK
     Route: 048

REACTIONS (2)
  - Sickle cell anaemia with crisis [Unknown]
  - Haemoglobin decreased [Not Recovered/Not Resolved]
